FAERS Safety Report 9276618 (Version 2)
Quarter: 2013Q2

REPORT INFORMATION
  Report Type: Spontaneous
  Country: US (occurrence: US)
  Receive Date: 20130507
  Receipt Date: 20130513
  Transmission Date: 20140414
  Serious: No
  Sender: FDA-Public Use
  Company Number: US-009507513-1305USA002744

PATIENT
  Age: 54 Year
  Sex: Male
  Weight: 74.83 kg

DRUGS (6)
  1. CLARITIN [Suspect]
     Indication: SEASONAL ALLERGY
     Dosage: 10 MG, QD
     Route: 048
     Dates: start: 20130411, end: 20130422
  2. CLARITIN [Suspect]
     Dosage: 20 MG, QD
     Route: 048
     Dates: start: 20130411, end: 20130422
  3. CENTRUM SILVER [Concomitant]
     Indication: PRODUCT USED FOR UNKNOWN INDICATION
     Dosage: 1 DF, QD
  4. OMEGA-3 [Concomitant]
     Indication: PRODUCT USED FOR UNKNOWN INDICATION
     Dosage: 1 DF, QD
  5. CVS PROBIOTIC ACIDOPHILUS [Concomitant]
     Indication: PRODUCT USED FOR UNKNOWN INDICATION
     Dosage: 1 DF, QD
  6. BENADRYL [Concomitant]
     Indication: SEASONAL ALLERGY
     Dosage: UNK, UNKNOWN

REACTIONS (3)
  - Dizziness [Unknown]
  - Drug ineffective [Unknown]
  - Overdose [Unknown]
